FAERS Safety Report 6759051-4 (Version None)
Quarter: 2010Q2

REPORT INFORMATION
  Report Type: 
  Country: None (occurrence: None)
  Receive Date: 20100607
  Receipt Date: 20100528
  Transmission Date: 20101027
  Serious: Yes (Disabling, Other)
  Sender: FDA-Public Use
  Company Number: US-BAYER-201015831BCC

PATIENT
  Age: 79 Year
  Sex: Female
  Weight: 68 kg

DRUGS (22)
  1. ASPIRIN [Suspect]
     Indication: ISCHAEMIC HEART DISEASE PROPHYLAXIS
     Dosage: TOTAL DAILY DOSE: 81 MG  UNIT DOSE: 81 MG
     Route: 048
     Dates: start: 19920101
  2. IMURAN [Concomitant]
     Route: 065
  3. HUMULIN N [Concomitant]
     Route: 065
  4. SYNTHROID [Concomitant]
     Route: 065
  5. LOVAZA [Concomitant]
     Route: 065
  6. GLIPIZIDE [Concomitant]
     Route: 065
  7. MESTINON [Concomitant]
     Route: 065
  8. VITAMIN B 50 [Concomitant]
     Route: 065
  9. XOPENEX [Concomitant]
     Route: 065
  10. XOPENEX [Concomitant]
     Route: 065
  11. LASIX [Concomitant]
     Route: 065
  12. EXFORGE [Concomitant]
     Route: 065
  13. CALTRATE [Concomitant]
     Route: 065
  14. RANITIDINE [Concomitant]
     Route: 065
  15. XALSTON [Concomitant]
     Route: 065
  16. LIDODERM [Concomitant]
     Route: 065
  17. PATONEL [Concomitant]
     Route: 065
  18. BIOTIN TOOHPASTE [Concomitant]
     Route: 065
  19. ORAMOIST [Concomitant]
     Route: 065
  20. FERROUS SUL [Concomitant]
     Route: 065
  21. IMDUR [Concomitant]
     Route: 065
  22. SULFA DRUG [Concomitant]
     Indication: LOCALISED INFECTION
     Route: 065
     Dates: start: 20100201

REACTIONS (3)
  - BLOOD DISORDER [None]
  - BLOOD URINE PRESENT [None]
  - DEAFNESS BILATERAL [None]
